FAERS Safety Report 5868242-6 (Version None)
Quarter: 2008Q3

REPORT INFORMATION
  Report Type: 
  Country: None (occurrence: None)
  Receive Date: 20080902
  Receipt Date: 20080821
  Transmission Date: 20090109
  Serious: Yes (Hospitalization)
  Sender: FDA-Public Use
  Company Number: FR-PFIZER INC-2008070542

PATIENT
  Sex: Female

DRUGS (5)
  1. LYRICA [Suspect]
     Route: 048
     Dates: start: 20071001, end: 20080101
  2. MELOXICAM [Suspect]
     Route: 048
     Dates: start: 20071101, end: 20080101
  3. ALLOPURINOL [Suspect]
     Route: 048
  4. TRAMADOL HCL [Suspect]
     Route: 048
  5. PANTOPRAZOLE [Suspect]
     Route: 048

REACTIONS (1)
  - LEUKOCYTOCLASTIC VASCULITIS [None]
